FAERS Safety Report 6601395-0 (Version None)
Quarter: 2010Q1

REPORT INFORMATION
  Report Type: 
  Country: None (occurrence: None)
  Receive Date: 20100225
  Receipt Date: 20100216
  Transmission Date: 20100710
  Serious: Yes (Other)
  Sender: FDA-Public Use
  Company Number: JP-PFIZER INC-2010010773

PATIENT
  Age: 17 Year
  Sex: Male

DRUGS (2)
  1. ZITHROMAX [Suspect]
     Indication: DYSURIA
     Dosage: 500 MG, 1X/DAY
     Route: 048
     Dates: start: 20100115, end: 20100115
  2. ZITHROMAX [Suspect]
     Dosage: 500 MG, 1X/DAY
     Route: 048
     Dates: start: 20100118, end: 20100118

REACTIONS (4)
  - DIARRHOEA [None]
  - DYSPHONIA [None]
  - PALPITATIONS [None]
  - THROAT TIGHTNESS [None]
